FAERS Safety Report 7836811-X (Version None)
Quarter: 2011Q4

REPORT INFORMATION
  Report Type: 
  Country: None (occurrence: None)
  Receive Date: 20111024
  Receipt Date: 20110729
  Transmission Date: 20120403
  Serious: No
  Sender: FDA-Public Use
  Company Number: US-ABBOTT-11P-163-0843107-00

PATIENT
  Sex: Female

DRUGS (5)
  1. LUPRON DEPOT [Suspect]
     Indication: ENDOMETRIOSIS
     Dates: start: 20110601
  2. TYLENOL WITH CODIENE #3 [Concomitant]
     Indication: PRODUCT USED FOR UNKNOWN INDICATION
  3. DICLOSENAC SODIUM EC [Concomitant]
     Indication: PRODUCT USED FOR UNKNOWN INDICATION
  4. DOCUSIL [Concomitant]
     Indication: PRODUCT USED FOR UNKNOWN INDICATION
  5. IRON [Concomitant]
     Indication: PRODUCT USED FOR UNKNOWN INDICATION

REACTIONS (1)
  - INSOMNIA [None]
